FAERS Safety Report 20182036 (Version 1)
Quarter: 2021Q4

REPORT INFORMATION
  Report Type: Spontaneous
  Country: US (occurrence: US)
  Receive Date: 20211214
  Receipt Date: 20211214
  Transmission Date: 20220303
  Serious: No
  Sender: FDA-Public Use
  Company Number: US-BAYER-2021A265560

PATIENT
  Age: 51 Year
  Sex: Female

DRUGS (4)
  1. MIRENA [Suspect]
     Active Substance: LEVONORGESTREL
     Indication: Rheumatoid arthritis
     Dosage: 20?G/DAY
     Route: 015
     Dates: start: 20180222
  2. MIRENA [Suspect]
     Active Substance: LEVONORGESTREL
     Indication: Contraception
  3. MIRENA [Suspect]
     Active Substance: LEVONORGESTREL
     Indication: Polyarthritis
  4. XELJANZ [Concomitant]
     Active Substance: TOFACITINIB CITRATE
     Dosage: UNK

REACTIONS (2)
  - Arthralgia [None]
  - Neck pain [None]

NARRATIVE: CASE EVENT DATE: 20211101
